FAERS Safety Report 7069484-7 (Version None)
Quarter: 2010Q4

REPORT INFORMATION
  Report Type: 
  Country: None (occurrence: None)
  Receive Date: 20101028
  Receipt Date: 20061113
  Transmission Date: 20110411
  Serious: No
  Sender: FDA-Public Use
  Company Number: HQWYE233909MAY06

PATIENT
  Age: 25 Year
  Sex: Female

DRUGS (7)
  1. EFFEXOR XR [Suspect]
     Route: 065
     Dates: start: 20051101, end: 20060401
  2. EFFEXOR XR [Suspect]
     Route: 065
     Dates: start: 20060501, end: 20060101
  3. EFFEXOR XR [Suspect]
     Route: 065
     Dates: start: 20060101, end: 20060101
  4. EFFEXOR XR [Suspect]
     Dosage: ^WEANED OFF^
     Route: 048
     Dates: start: 20060101, end: 20061029
  5. VENLAFAXINE HYDROCHLORIDE [Suspect]
     Route: 065
     Dates: start: 20060101, end: 20061001
  6. VENLAFAXINE HYDROCHLORIDE [Suspect]
     Route: 065
     Dates: start: 20060101, end: 20061029
  7. ATIVAN [Concomitant]

REACTIONS (15)
  - ABNORMAL SENSATION IN EYE [None]
  - ANXIETY [None]
  - CONDITION AGGRAVATED [None]
  - DIZZINESS [None]
  - DRUG WITHDRAWAL SYNDROME [None]
  - DRY MOUTH [None]
  - FATIGUE [None]
  - FEELING ABNORMAL [None]
  - HEADACHE [None]
  - HOT FLUSH [None]
  - HYPERHIDROSIS [None]
  - METRORRHAGIA [None]
  - SOMNOLENCE [None]
  - VERTIGO [None]
  - WEIGHT INCREASED [None]
